FAERS Safety Report 6680634-4 (Version None)
Quarter: 2010Q2

REPORT INFORMATION
  Report Type: 
  Country: None (occurrence: None)
  Receive Date: 20100414
  Receipt Date: 20100402
  Transmission Date: 20101027
  Serious: Yes (Other)
  Sender: FDA-Public Use
  Company Number: US-PFIZER INC-2010043051

PATIENT
  Sex: Male
  Weight: 63 kg

DRUGS (5)
  1. GENOTROPIN [Suspect]
     Indication: BODY HEIGHT BELOW NORMAL
     Dosage: 2.4 MG, DAILY
     Route: 058
     Dates: start: 20100302, end: 20100326
  2. CALCORT [Concomitant]
     Dosage: 45 MG, EVERY OTHER DAY
  3. LISINOPRIL [Concomitant]
     Dosage: 5 MG, 2X/DAY
  4. FOSAMAX [Concomitant]
     Dosage: 70 MG, ONCE A WEEK
  5. ENALAPRIL MALEATE [Concomitant]
     Dosage: 5 MG, 2X/DAY

REACTIONS (4)
  - CSF TEST ABNORMAL [None]
  - FATIGUE [None]
  - MALAISE [None]
  - OPTIC NERVE DISORDER [None]
